FAERS Safety Report 4970201-2 (Version None)
Quarter: 2006Q2

REPORT INFORMATION
  Report Type: 
  Country: None (occurrence: None)
  Receive Date: 20060406
  Receipt Date: 20060322
  Transmission Date: 20061013
  Serious: Yes (Other)
  Sender: FDA-Public Use
  Company Number: US200603005785

PATIENT
  Age: 71 Year
  Sex: Female

DRUGS (2)
  1. EVISTA [Suspect]
     Indication: OSTEOPOROSIS
     Dates: start: 19960101, end: 20030101
  2. FOSAMAX /ITA/ (ALENDRONATE SODIUM) [Concomitant]

REACTIONS (2)
  - BREAST CANCER FEMALE [None]
  - MAMMOGRAM ABNORMAL [None]
